FAERS Safety Report 6544301-X (Version None)
Quarter: 2010Q1

REPORT INFORMATION
  Report Type: 
  Country: None (occurrence: None)
  Receive Date: 20100115
  Receipt Date: 20100104
  Transmission Date: 20100710
  Serious: Yes (Hospitalization)
  Sender: FDA-Public Use
  Company Number: PAR_03301_2010

PATIENT
  Age: 68 Year
  Sex: Female

DRUGS (3)
  1. CAPTOPRIL [Suspect]
     Indication: HYPERTENSION
     Dosage: DF SUBLINGUAL
     Route: 060
  2. CAPTOPRIL [Suspect]
     Indication: HYPERTENSION
     Dosage: DF SUBLINGUAL
     Route: 060
  3. CARVEDILOL [Concomitant]

REACTIONS (1)
  - ANGIOEDEMA [None]
